FAERS Safety Report 24005172 (Version 1)
Quarter: 2024Q2

REPORT INFORMATION
  Report Type: Spontaneous
  Country: US (occurrence: None)
  Receive Date: 20240621
  Receipt Date: 20240621
  Transmission Date: 20240716
  Serious: Yes (Hospitalization)
  Sender: FDA-Public Use
  Company Number: None

PATIENT
  Age: 80 Year
  Sex: Male
  Weight: 61 kg

DRUGS (1)
  1. VORICONAZOLE [Suspect]
     Active Substance: VORICONAZOLE
     Indication: Bronchopulmonary aspergillosis
     Dates: start: 20240307, end: 20240309

REACTIONS (12)
  - Vision blurred [None]
  - Disorientation [None]
  - Dizziness [None]
  - Hallucination [None]
  - Visual impairment [None]
  - Fall [None]
  - Photopsia [None]
  - Dizziness [None]
  - Xanthopsia [None]
  - Toxicity to various agents [None]
  - Pulmonary mass [None]
  - Fungal infection [None]

NARRATIVE: CASE EVENT DATE: 20240308
